FAERS Safety Report 10186045 (Version 1)
Quarter: 2014Q2

REPORT INFORMATION
  Report Type: Spontaneous
  Country: US (occurrence: None)
  Receive Date: 20140520
  Receipt Date: 20140520
  Transmission Date: 20141212
  Serious: Yes (Life-Threatening)
  Sender: FDA-Public Use
  Company Number: None

PATIENT
  Age: 58 Year
  Sex: Male
  Weight: 198 kg

DRUGS (1)
  1. FOSPHENYTOIN [Suspect]
     Indication: CONVULSION
     Dosage: 4020 MG, ONE-TIME, IVPB

REACTIONS (5)
  - Hypotension [None]
  - Bradycardia [None]
  - Pulseless electrical activity [None]
  - Cardiac arrest [None]
  - Cardio-respiratory arrest [None]
